FAERS Safety Report 5930097-9 (Version None)
Quarter: 2008Q4

REPORT INFORMATION
  Report Type: 
  Country: None (occurrence: None)
  Receive Date: 20081024
  Receipt Date: 20081022
  Transmission Date: 20090506
  Serious: No
  Sender: FDA-Public Use
  Company Number: US-B.I. PHARMACEUTICALS,INC./RIDGEFIELD-2008-BP-02515BP

PATIENT
  Sex: Female

DRUGS (5)
  1. SPIRIVA [Suspect]
     Indication: CHRONIC OBSTRUCTIVE PULMONARY DISEASE
     Dosage: 18MCG
     Route: 055
     Dates: start: 20071201
  2. SYMBICORT [Concomitant]
     Indication: CHRONIC OBSTRUCTIVE PULMONARY DISEASE
  3. VITAMIN E [Concomitant]
     Indication: MEDICAL DIET
     Route: 048
  4. ASCORBIC ACID [Concomitant]
     Indication: MEDICAL DIET
     Route: 048
  5. CALCIUM [Concomitant]
     Indication: MEDICAL DIET
     Route: 048

REACTIONS (10)
  - ABDOMINAL PAIN LOWER [None]
  - ARTHRALGIA [None]
  - BONE EROSION [None]
  - DYSURIA [None]
  - GINGIVAL PAIN [None]
  - INSOMNIA [None]
  - MICTURITION URGENCY [None]
  - NERVOUSNESS [None]
  - PAIN IN EXTREMITY [None]
  - TINNITUS [None]
